FAERS Safety Report 6074726-0 (Version None)
Quarter: 2009Q1

REPORT INFORMATION
  Report Type: 
  Country: None (occurrence: None)
  Receive Date: 20090212
  Receipt Date: 20090205
  Transmission Date: 20090719
  Serious: Yes (Life-Threatening, Hospitalization)
  Sender: FDA-Public Use
  Company Number: FR-JNJFOC-20090201316

PATIENT
  Age: 67 Year
  Sex: Female

DRUGS (14)
  1. OFLOCET [Suspect]
     Indication: DRUG USE FOR UNKNOWN INDICATION
     Route: 048
  2. VASTEN [Suspect]
     Indication: DRUG USE FOR UNKNOWN INDICATION
     Route: 048
  3. CORDARONE [Suspect]
     Indication: DRUG USE FOR UNKNOWN INDICATION
     Route: 048
  4. ROCEPHIN [Suspect]
     Indication: DRUG USE FOR UNKNOWN INDICATION
     Dosage: 2G SOLUTION FOR INFUSION
     Route: 042
  5. CELLCEPT [Suspect]
     Indication: DRUG USE FOR UNKNOWN INDICATION
     Route: 048
  6. AMLOD [Suspect]
     Indication: DRUG USE FOR UNKNOWN INDICATION
     Route: 048
  7. TENORMIN [Suspect]
     Indication: DRUG USE FOR UNKNOWN INDICATION
     Route: 048
  8. NEORAL [Concomitant]
     Route: 048
  9. CYCLOSPORINE [Concomitant]
     Route: 065
  10. FUROSEMIDE [Concomitant]
     Route: 065
  11. FOLIC ACID [Concomitant]
     Route: 065
  12. FLUINDONE [Concomitant]
     Route: 065
  13. METRONIDAZOLE [Concomitant]
     Route: 065
  14. DARBEPOETIN ALFA [Concomitant]
     Route: 065

REACTIONS (5)
  - ANAEMIA [None]
  - MUSCULAR WEAKNESS [None]
  - PARESIS [None]
  - RENAL FAILURE [None]
  - RHABDOMYOLYSIS [None]
